FAERS Safety Report 11272760 (Version 2)
Quarter: 2015Q3

REPORT INFORMATION
  Report Type: Spontaneous
  Country: DE (occurrence: DE)
  Receive Date: 20150715
  Receipt Date: 20150903
  Transmission Date: 20151125
  Serious: Yes (Death, Other)
  Sender: FDA-Public Use
  Company Number: DE-PFIZER INC-2015234135

PATIENT
  Age: 59 Year
  Sex: Male

DRUGS (1)
  1. REVATIO [Suspect]
     Active Substance: SILDENAFIL CITRATE
     Indication: PREOPERATIVE CARE
     Dosage: 0.8MG/ML INJECTION

REACTIONS (2)
  - Cardiac failure [Fatal]
  - Hypotension [Unknown]
